FAERS Safety Report 4710168-5 (Version None)
Quarter: 2005Q3

REPORT INFORMATION
  Report Type: 
  Country: None (occurrence: None)
  Receive Date: 20050708
  Receipt Date: 20050708
  Transmission Date: 20060218
  Serious: Yes (Other)
  Sender: FDA-Public Use
  Company Number: None

PATIENT
  Age: 50 Year
  Sex: Female

DRUGS (5)
  1. FLUCONAZOLE [Suspect]
     Indication: PULMONARY COCCIDIOIDES
     Dosage: 400 MG/DAY THEN 600MG ORAL
     Route: 048
     Dates: start: 20050321, end: 20050530
  2. FLUCONAZOLE [Suspect]
     Indication: PULMONARY COCCIDIOIDES
     Dosage: 400 MG/DAY THEN 600MG ORAL
     Route: 048
     Dates: start: 20050531, end: 20050616
  3. MULTI-VITAMIN [Concomitant]
  4. CALCIUM SUPPLEMENT [Concomitant]
  5. GLUCOSAMINE [Concomitant]

REACTIONS (6)
  - ALOPECIA [None]
  - ARTHRALGIA [None]
  - DIFFICULTY IN WALKING [None]
  - MUSCULOSKELETAL STIFFNESS [None]
  - PHOTOPHOBIA [None]
  - SWELLING [None]
